FAERS Safety Report 4958944-8 (Version None)
Quarter: 2006Q1

REPORT INFORMATION
  Report Type: 
  Country: None (occurrence: None)
  Receive Date: 20060324
  Receipt Date: 20060315
  Transmission Date: 20060701
  Serious: Yes (Other)
  Sender: FDA-Public Use
  Company Number: 2006037281

PATIENT
  Age: 72 Year
  Sex: Female
  Weight: 70.3075 kg

DRUGS (9)
  1. BENADRYL [Suspect]
     Indication: INSOMNIA
     Dosage: 1 ULTRA TAB DAILY, ORAL
     Route: 048
  2. NORVASC [Suspect]
     Indication: HYPERTENSION
     Dosage: 5 MG ONCE DAILY,
  3. IRON (IRON) [Suspect]
     Indication: ANAEMIA
     Dosage: ONE TEASPOON DAILY,
     Dates: start: 20060206
  4. HYDROCHLOROTHIAZIDE [Concomitant]
  5. VERAPAMIL [Concomitant]
  6. FOLIC ACID [Concomitant]
  7. ATORVASTATIN CALCIUM [Concomitant]
  8. ALPRAZOLAM [Concomitant]
  9. POTASSIUM (POTASSIUM) [Concomitant]

REACTIONS (4)
  - ANAEMIA [None]
  - DRUG DEPENDENCE [None]
  - DYSURIA [None]
  - HYPERTENSION [None]
